FAERS Safety Report 13107276 (Version 2)
Quarter: 2017Q2

REPORT INFORMATION
  Report Type: Report from Study
  Country: US (occurrence: US)
  Receive Date: 20170112
  Receipt Date: 20170414
  Transmission Date: 20170830
  Serious: Yes (Other)
  Sender: FDA-Public Use
  Company Number: US-AMGEN-USASL2017001728

PATIENT
  Age: 68 Year
  Sex: Male

DRUGS (1)
  1. REPATHA [Suspect]
     Active Substance: EVOLOCUMAB
     Indication: MUCOPOLYSACCHARIDOSIS I
     Dosage: 140 MG, Q2WK
     Route: 058
     Dates: start: 201601

REACTIONS (2)
  - Off label use [Unknown]
  - Respiratory disorder [Unknown]
